FAERS Safety Report 9788629 (Version 3)
Quarter: 2014Q1

REPORT INFORMATION
  Report Type: Spontaneous
  Country: US (occurrence: US)
  Receive Date: 20131230
  Receipt Date: 20140123
  Transmission Date: 20141002
  Serious: Yes (Other)
  Sender: FDA-Public Use
  Company Number: US-JNJFOC-20131216714

PATIENT
  Age: 47 Year
  Sex: Male
  Weight: 156.49 kg

DRUGS (8)
  1. INVOKANA [Suspect]
     Indication: TYPE 2 DIABETES MELLITUS
     Route: 048
     Dates: start: 20131214
  2. LEVOFLOXACIN [Suspect]
     Indication: PNEUMONIA
     Dates: start: 20131206, end: 20131212
  3. VICTOZA [Concomitant]
     Indication: DIABETES MELLITUS
     Dates: start: 20131209
  4. METFORMIN [Concomitant]
     Indication: DIABETES MELLITUS
  5. CRESTOR [Concomitant]
  6. VERAPAMIL [Concomitant]
  7. PERCOCET [Concomitant]
     Indication: BACK PAIN
  8. PERCOCET [Concomitant]
     Indication: ARTHRALGIA

REACTIONS (3)
  - Pneumonia [Unknown]
  - Mouth ulceration [Unknown]
  - Rash maculo-papular [Unknown]
